FAERS Safety Report 6739313-7 (Version None)
Quarter: 2010Q2

REPORT INFORMATION
  Report Type: 
  Country: None (occurrence: None)
  Receive Date: 20100525
  Receipt Date: 20100514
  Transmission Date: 20101027
  Serious: Yes (Death, Other)
  Sender: FDA-Public Use
  Company Number: JP-SHIRE-SPV1-2010-00422

PATIENT

DRUGS (17)
  1. LANTHANUM CARBONATE [Suspect]
     Indication: HYPERPHOSPHATAEMIA
     Dosage: 750 MG, 1X/DAY:QD
     Route: 048
     Dates: start: 20090630, end: 20091022
  2. CALCIUM CARBONATE [Concomitant]
     Indication: HYPERPHOSPHATAEMIA
     Dosage: 3000 MG, UNK
     Route: 048
     Dates: start: 20031125, end: 20090630
  3. OXAROL [Concomitant]
     Dosage: 5 UG, UNK
     Route: 042
     Dates: start: 20061214, end: 20091022
  4. CINACALCET HYDROCHLORIDE [Concomitant]
     Indication: HYPERPARATHYROIDISM SECONDARY
     Dosage: 25 MG, UNK
     Route: 048
     Dates: start: 20080424, end: 20090714
  5. SIGMART [Concomitant]
     Dosage: 15 MG, UNK
     Route: 048
  6. OPALMON [Concomitant]
     Dosage: 10 UG, UNK
     Route: 048
  7. SELBEX [Concomitant]
     Dosage: 100 UG, UNK
     Route: 048
  8. PANALDINE [Concomitant]
     Dosage: 200 MG, UNK
     Route: 048
  9. CEROCRAL [Concomitant]
     Dosage: 40 MG, UNK
     Route: 048
  10. ASPIRIN [Concomitant]
     Dosage: 100 MG, UNK
     Route: 048
  11. GASTER                             /00661201/ [Concomitant]
     Dosage: 10 MG, UNK
     Route: 048
  12. RISUMIC [Concomitant]
     Indication: MYOCARDIAL INFARCTION
     Dosage: 10 MG, UNK
     Route: 048
     Dates: start: 20080422
  13. MEVALOTIN [Concomitant]
     Dosage: 5 MG, UNK
     Route: 048
  14. PURSENNID                          /00142207/ [Concomitant]
     Dosage: 36 MG, UNK
     Route: 048
  15. DOPS [Concomitant]
     Dosage: 100 MG, UNK
     Route: 048
     Dates: start: 20090804
  16. ARGAMATE [Concomitant]
     Dosage: 25 G, UNK
     Route: 048
     Dates: start: 20090922
  17. EPOGIN [Concomitant]
     Indication: DRUG USE FOR UNKNOWN INDICATION
     Route: 042

REACTIONS (2)
  - MYOCARDIAL INFARCTION [None]
  - PROCEDURAL HYPOTENSION [None]
